FAERS Safety Report 6557366-6 (Version None)
Quarter: 2010Q1

REPORT INFORMATION
  Report Type: 
  Country: None (occurrence: None)
  Receive Date: 20100129
  Receipt Date: 20100114
  Transmission Date: 20100710
  Serious: Yes (Other)
  Sender: FDA-Public Use
  Company Number: PHEH2010US00980

PATIENT
  Sex: Male

DRUGS (2)
  1. ZOMETA [Suspect]
  2. REVLIMID [Suspect]
     Indication: MULTIPLE MYELOMA
     Dosage: 25 MG DAILY
     Route: 048
     Dates: start: 20090917

REACTIONS (7)
  - ABDOMINAL PAIN UPPER [None]
  - BRONCHITIS [None]
  - FATIGUE [None]
  - RED BLOOD CELL COUNT DECREASED [None]
  - RHINORRHOEA [None]
  - STOMATITIS [None]
  - WEIGHT DECREASED [None]
